FAERS Safety Report 16089309 (Version 1)
Quarter: 2019Q1

REPORT INFORMATION
  Report Type: Spontaneous
  Country: FR (occurrence: FR)
  Receive Date: 20190319
  Receipt Date: 20190319
  Transmission Date: 20190418
  Serious: Yes (Death, Hospitalization)
  Sender: FDA-Public Use
  Company Number: FR-JNJFOC-20060202979

PATIENT
  Age: 71 Year
  Sex: Female

DRUGS (6)
  1. TAHOR [Interacting]
     Active Substance: ATORVASTATIN CALCIUM
     Indication: DYSLIPIDAEMIA
     Route: 048
     Dates: start: 20051209, end: 20060113
  2. CORDARONE [Suspect]
     Active Substance: AMIODARONE HYDROCHLORIDE
     Indication: ILL-DEFINED DISORDER
     Route: 048
     Dates: start: 20051004
  3. DUROGESIC [Suspect]
     Active Substance: FENTANYL
     Indication: ISCHAEMIC LIMB PAIN
     Route: 062
     Dates: start: 20051209, end: 20060109
  4. FLUINDIONE [Interacting]
     Active Substance: FLUINDIONE
     Indication: ILL-DEFINED DISORDER
     Route: 048
     Dates: end: 20060109
  5. DUROGESIC [Suspect]
     Active Substance: FENTANYL
     Indication: NEURALGIA
     Route: 062
     Dates: start: 20051209, end: 20060109
  6. FLOXYFRAL [Suspect]
     Active Substance: FLUVOXAMINE
     Indication: DEPRESSION
     Route: 048
     Dates: start: 20051121, end: 20060109

REACTIONS (5)
  - Drug interaction [Fatal]
  - Hallucination [Recovered/Resolved]
  - Intestinal ischaemia [Fatal]
  - Prothrombin time ratio decreased [Fatal]
  - Disorientation [Recovered/Resolved]

NARRATIVE: CASE EVENT DATE: 20060109
